FAERS Safety Report 18089097 (Version 2)
Quarter: 2020Q3

REPORT INFORMATION
  Report Type: Other
  Country: US (occurrence: US)
  Receive Date: 20200730
  Receipt Date: 20200806
  Transmission Date: 20201103
  Serious: Yes (Hospitalization, Other)
  Sender: FDA-Public Use
  Company Number: US-ROCHE-2649891

PATIENT
  Sex: Female
  Weight: 110.78 kg

DRUGS (12)
  1. FOLATE [Concomitant]
     Active Substance: FOLATE SODIUM
     Route: 048
  2. MUCINEX [Concomitant]
     Active Substance: GUAIFENESIN
     Route: 048
  3. LYRICA [Concomitant]
     Active Substance: PREGABALIN
     Route: 048
  4. NORCO [Concomitant]
     Active Substance: ACETAMINOPHEN\HYDROCODONE BITARTRATE
     Indication: PAIN
     Dosage: 10?325 MG TABLET
     Route: 048
  5. MONODOX [DOXYCYCLINE] [Concomitant]
     Route: 048
  6. MAGNESIUM OXIDE. [Concomitant]
     Active Substance: MAGNESIUM OXIDE
     Route: 048
  7. MOBIC [Concomitant]
     Active Substance: MELOXICAM
     Route: 048
  8. LOPRESSOR [Concomitant]
     Active Substance: METOPROLOL TARTRATE
     Route: 048
  9. DELTASONE [Concomitant]
     Active Substance: PREDNISONE
     Dosage: 40 MGX3 DAYS THEN 30MG FOR 3 DAYS THEN 20 MG FOR 3 DAYS THEN 10MG FOR 3 DAYS
     Route: 048
  10. COLACE [Concomitant]
     Active Substance: DOCUSATE SODIUM
     Route: 048
  11. ACTEMRA [Suspect]
     Active Substance: TOCILIZUMAB
     Indication: GIANT CELL ARTERITIS
     Dosage: INJECT 162MG SUBCUTANEOUSLY EVERY 7 DAY(S)
     Route: 058
  12. LASIX [Concomitant]
     Active Substance: FUROSEMIDE
     Route: 048

REACTIONS (5)
  - Kidney infection [Unknown]
  - Monoplegia [Unknown]
  - Hypotension [Unknown]
  - Spinal stroke [Unknown]
  - Gait inability [Unknown]
